FAERS Safety Report 5494478-2 (Version None)
Quarter: 2007Q4

REPORT INFORMATION
  Report Type: 
  Country: None (occurrence: None)
  Receive Date: 20071023
  Receipt Date: 20071023
  Transmission Date: 20080405
  Serious: Yes (Hospitalization)
  Sender: FDA-Public Use
  Company Number: None

PATIENT
  Age: 73 Year
  Sex: Female
  Weight: 60.4 kg

DRUGS (1)
  1. LIPITOR [Suspect]
     Indication: HYPERLIPIDAEMIA
     Dosage: 20MG  DAILY  PO
     Route: 048

REACTIONS (5)
  - ABDOMINAL PAIN [None]
  - CHROMATURIA [None]
  - CONSTIPATION [None]
  - JAUNDICE [None]
  - NAUSEA [None]
